FAERS Safety Report 5927430-0 (Version None)
Quarter: 2008Q4

REPORT INFORMATION
  Report Type: 
  Country: None (occurrence: None)
  Receive Date: 20081022
  Receipt Date: 20081022
  Transmission Date: 20090506
  Serious: Yes (Other)
  Sender: FDA-Public Use
  Company Number: None

PATIENT
  Sex: Female
  Weight: 79.8331 kg

DRUGS (2)
  1. RITUXAN [Suspect]
     Indication: RHEUMATOID ARTHRITIS
     Dosage: 1,000 MG DAY 1 IV
     Route: 042
     Dates: start: 20080930
  2. RITUXAN [Suspect]
     Indication: RHEUMATOID ARTHRITIS
     Dosage: 1,000 MG DAY 14 IV
     Route: 042
     Dates: start: 20081014

REACTIONS (2)
  - PRURITUS GENERALISED [None]
  - RASH GENERALISED [None]
